FAERS Safety Report 6643456-6 (Version None)
Quarter: 2010Q1

REPORT INFORMATION
  Report Type: 
  Country: None (occurrence: None)
  Receive Date: 20100319
  Receipt Date: 20100308
  Transmission Date: 20100710
  Serious: Yes (Hospitalization)
  Sender: FDA-Public Use
  Company Number: US-WATSON-2010-02914

PATIENT
  Age: 42 Year
  Sex: Male

DRUGS (1)
  1. YOHIMBINE (WATSON LABORATORIES) [Suspect]
     Indication: SEXUAL DYSFUNCTION
     Dosage: UNK
     Route: 048

REACTIONS (1)
  - PRIAPISM [None]
